FAERS Safety Report 9466798 (Version 1)
Quarter: 2013Q3

REPORT INFORMATION
  Report Type: Report from Study
  Country: US (occurrence: US)
  Receive Date: 20130820
  Receipt Date: 20130820
  Transmission Date: 20140515
  Serious: Yes (Hospitalization)
  Sender: FDA-Public Use
  Company Number: US-BAYER-2013-099575

PATIENT
  Age: 49 Year
  Sex: Female

DRUGS (1)
  1. EXTAVIA [Suspect]
     Indication: MULTIPLE SCLEROSIS
     Dosage: 0.25 MG, UNK
     Route: 058
     Dates: start: 20100401

REACTIONS (3)
  - Abnormal behaviour [Recovered/Resolved]
  - Incoherent [Recovered/Resolved]
  - Insomnia [Recovered/Resolved]
